FAERS Safety Report 7302703-8 (Version None)
Quarter: 2011Q1

REPORT INFORMATION
  Report Type: 
  Country: None (occurrence: None)
  Receive Date: 20110218
  Receipt Date: 20110202
  Transmission Date: 20110831
  Serious: Yes (Hospitalization)
  Sender: FDA-Public Use
  Company Number: GB-PFIZER INC-2010038830

PATIENT
  Age: 81 Year
  Sex: Male

DRUGS (11)
  1. THIAMINE HYDROCHLORIDE [Concomitant]
     Indication: ATRIAL FLUTTER
  2. BISOPROLOL FUMARATE [Concomitant]
     Indication: ATRIAL FIBRILLATION
     Dosage: 1 MG, 1X/DAY
     Dates: start: 20091014
  3. RAMIPRIL [Concomitant]
     Indication: ATRIAL FIBRILLATION
     Dosage: 1 MG, 2X/DAY
     Dates: end: 20091001
  4. RAMIPRIL [Concomitant]
     Indication: ATRIAL FLUTTER
  5. DIGOXIN [Concomitant]
     Indication: ATRIAL FLUTTER
  6. DIGOXIN [Concomitant]
     Indication: ATRIAL FIBRILLATION
     Dosage: 62 MG, 3X/DAY
     Dates: start: 20091014
  7. FUROSEMIDE [Concomitant]
     Indication: ATRIAL FIBRILLATION
     Dosage: 40 MG, 1X/DAY
     Dates: start: 20091014
  8. CELECOXIB [Suspect]
     Indication: OSTEOARTHRITIS
     Dosage: 100 MG, 3X/DAY
     Route: 048
     Dates: start: 20090130, end: 20091005
  9. BISOPROLOL FUMARATE [Concomitant]
     Indication: ATRIAL FLUTTER
  10. FUROSEMIDE [Concomitant]
     Indication: ATRIAL FLUTTER
  11. THIAMINE HYDROCHLORIDE [Concomitant]
     Indication: ATRIAL FIBRILLATION
     Dosage: 100 MG, 2X/DAY
     Dates: start: 20091014

REACTIONS (2)
  - ATRIAL FLUTTER [None]
  - ATRIAL FIBRILLATION [None]
